FAERS Safety Report 20262810 (Version 1)
Quarter: 2021Q4

REPORT INFORMATION
  Report Type: Spontaneous
  Country: DE (occurrence: DE)
  Receive Date: 20211231
  Receipt Date: 20211231
  Transmission Date: 20220303
  Serious: Yes (Hospitalization)
  Sender: FDA-Public Use
  Company Number: DE-ADRED-07643-01

PATIENT
  Age: 62 Year
  Sex: Male
  Weight: 205 kg

DRUGS (9)
  1. PREDNISOLONE [Suspect]
     Active Substance: PREDNISOLONE
     Dosage: 60 MG, SCHEME
     Route: 065
  2. PANTOPRAZOLE SODIUM [Concomitant]
     Active Substance: PANTOPRAZOLE SODIUM
     Dosage: 80 MILLIGRAM DAILY; 1-0-1-0
  3. RAMIPRIL [Concomitant]
     Active Substance: RAMIPRIL
     Dosage: 5 MILLIGRAM DAILY; 1-0-0-0
  4. DIMETHINDENE [Concomitant]
     Active Substance: DIMETHINDENE
     Dosage: 1 MG, AS NEEDED
  5. TORSEMIDE [Concomitant]
     Active Substance: TORSEMIDE
     Dosage: 10 MG, SCHEME
  6. PREDNICARBATE [Concomitant]
     Active Substance: PREDNICARBATE
     Dosage: REQUIREMENT
     Route: 008
  7. METRONIDAZOLE [Concomitant]
     Active Substance: METRONIDAZOLE
     Dosage: 400 MG, SCHEME
  8. SPIRONOLACTONE [Concomitant]
     Active Substance: SPIRONOLACTONE
     Dosage: 25 MILLIGRAM DAILY; 1-0-0-0
  9. CLARITHROMYCIN [Concomitant]
     Active Substance: CLARITHROMYCIN
     Dosage: 500 MG, SCHEME

REACTIONS (12)
  - Hyponatraemia [Unknown]
  - Weight increased [Unknown]
  - Tachycardia [Unknown]
  - Systemic infection [Unknown]
  - Renal impairment [Unknown]
  - Fall [Unknown]
  - Anaemia [Unknown]
  - Obesity [Unknown]
  - Impaired self-care [Unknown]
  - Dyspnoea [Unknown]
  - General physical health deterioration [Unknown]
  - Electrocardiogram abnormal [Unknown]
